FAERS Safety Report 22315321 (Version 1)
Quarter: 2023Q2

REPORT INFORMATION
  Report Type: Spontaneous
  Country: US (occurrence: None)
  Receive Date: 20230511
  Receipt Date: 20230511
  Transmission Date: 20230722
  Serious: No
  Sender: FDA-Public Use
  Company Number: None

PATIENT
  Age: 67 Year
  Sex: Female

DRUGS (15)
  1. MYCOPHENOLIC ACID [Suspect]
     Active Substance: MYCOPHENOLIC ACID
     Indication: Renal transplant
     Dosage: FREQUENCY : TWICE A DAY;?
     Route: 048
     Dates: start: 20121210
  2. TACROLIMUS [Suspect]
     Active Substance: TACROLIMUS
     Indication: Renal transplant
     Dosage: FREQUENCY : TWICE A DAY;?
     Route: 048
     Dates: start: 20121210
  3. LEVOTHYROXINE [Concomitant]
     Active Substance: LEVOTHYROXINE
  4. ASPIRIN EC LOW DOSE [Concomitant]
  5. VITAMIN C [Concomitant]
     Active Substance: ASCORBIC ACID
  6. ZICAM COLD RMDY RAPID MLT CHRY 25^S [Concomitant]
  7. CENTRUM WOMEN TABLETS [Concomitant]
  8. LAMOTRIGINE [Concomitant]
     Active Substance: LAMOTRIGINE
  9. LOSARTAN [Concomitant]
     Active Substance: LOSARTAN
  10. MELATONIN [Concomitant]
     Active Substance: MELATONIN
  11. METOPROLOL TARTRATE [Concomitant]
     Active Substance: METOPROLOL TARTRATE
  12. OXCARBAZEPINE [Concomitant]
     Active Substance: OXCARBAZEPINE
  13. PREDNISONE [Concomitant]
     Active Substance: PREDNISONE
  14. QUETIAPINE [Concomitant]
     Active Substance: QUETIAPINE
  15. VITAMIN D3 [Concomitant]
     Active Substance: CHOLECALCIFEROL

REACTIONS (1)
  - Nasopharyngitis [None]

NARRATIVE: CASE EVENT DATE: 20230509
